FAERS Safety Report 10761380 (Version 1)
Quarter: 2015Q1

REPORT INFORMATION
  Report Type: Spontaneous
  Country: US (occurrence: None)
  Receive Date: 20150203
  Receipt Date: 20150203
  Transmission Date: 20150721
  Serious: No
  Sender: FDA-Public Use
  Company Number: None

PATIENT
  Age: 68 Year
  Sex: Male
  Weight: 121.2 kg

DRUGS (4)
  1. ENOXAPARIN [Suspect]
     Active Substance: ENOXAPARIN
     Indication: CARDIOVASCULAR DISORDER
     Dosage: 40 MG, EVERY DAY, SQ
     Route: 058
     Dates: start: 20150103, end: 20150106
  2. ENOXAPARIN [Suspect]
     Active Substance: ENOXAPARIN
     Indication: THROMBOSIS PROPHYLAXIS
     Dosage: 40 MG, EVERY DAY, SQ
     Route: 058
     Dates: start: 20150103, end: 20150106
  3. ENOXAPARIN [Suspect]
     Active Substance: ENOXAPARIN
     Indication: ATRIAL FIBRILLATION
     Dosage: 40 MG, EVERY DAY, SQ
     Route: 058
     Dates: start: 20150103, end: 20150106
  4. ENOXAPARIN [Suspect]
     Active Substance: ENOXAPARIN
     Dosage: 40 MG, EVERY DAY, SQ
     Route: 058
     Dates: start: 20150103, end: 20150106

REACTIONS (1)
  - Thrombocytopenia [None]

NARRATIVE: CASE EVENT DATE: 20150106
